FAERS Safety Report 10289420 (Version 1)
Quarter: 2014Q3

REPORT INFORMATION
  Report Type: Spontaneous
  Country: IT (occurrence: IT)
  Receive Date: 20140710
  Receipt Date: 20140710
  Transmission Date: 20150326
  Serious: Yes (Hospitalization)
  Sender: FDA-Public Use
  Company Number: PHHY2014IT083787

PATIENT
  Age: 83 Year
  Sex: Female

DRUGS (1)
  1. OLANZAPINE. [Suspect]
     Active Substance: OLANZAPINE
     Dosage: 10 MG PER DAY
     Dates: start: 201302

REACTIONS (4)
  - Fall [Unknown]
  - Hyponatraemia [Unknown]
  - Ischaemic stroke [Unknown]
  - Confusional state [Unknown]

NARRATIVE: CASE EVENT DATE: 201303
